FAERS Safety Report 8581820-9 (Version None)
Quarter: 2012Q3

REPORT INFORMATION
  Report Type: 
  Country: None (occurrence: None)
  Receive Date: 20120809
  Receipt Date: 20120726
  Transmission Date: 20120928
  Serious: No
  Sender: FDA-Public Use
  Company Number: US-ASTRAZENECA-2012SE53171

PATIENT
  Age: 39 Year
  Sex: Female
  Weight: 68 kg

DRUGS (3)
  1. NEXIUM [Suspect]
     Indication: GASTROOESOPHAGEAL REFLUX DISEASE
     Route: 048
     Dates: start: 20070101, end: 20110101
  2. ASPIRIN [Concomitant]
  3. CLONIDINE [Concomitant]
     Indication: HYPERTENSION

REACTIONS (6)
  - EYE PAIN [None]
  - HEADACHE [None]
  - VOMITING [None]
  - DRUG DOSE OMISSION [None]
  - HYPERTENSION [None]
  - MIGRAINE [None]
